FAERS Safety Report 10219191 (Version 2)
Quarter: 2014Q2

REPORT INFORMATION
  Report Type: Spontaneous
  Country: FR (occurrence: FR)
  Receive Date: 20140605
  Receipt Date: 20140605
  Transmission Date: 20141212
  Serious: Yes (Life-Threatening, Hospitalization)
  Sender: FDA-Public Use
  Company Number: FR-PFIZER INC-2013338508

PATIENT
  Age: 20 Year
  Sex: Female

DRUGS (13)
  1. TAZOCILLINE [Suspect]
     Indication: INFECTION
     Dosage: 4 G, 3X/DAY
     Route: 042
     Dates: start: 20130914, end: 20130930
  2. VANCOMYCIN [Suspect]
     Indication: INFECTION
     Dosage: 1.25 G, 2X/DAY
     Route: 042
     Dates: start: 201309, end: 20130930
  3. INEXIUM [Suspect]
     Dosage: 40 MG, 1X/DAY
     Route: 048
     Dates: start: 201309
  4. AUGMENTIN [Suspect]
     Dosage: UNK
     Route: 065
     Dates: start: 20130907, end: 20130912
  5. ACUPAN [Suspect]
     Dosage: 20 MG, 3X/DAY
     Route: 065
     Dates: start: 201309
  6. ACTISKENAN [Suspect]
     Dosage: 10 MG, AS NEEDED
     Route: 048
     Dates: start: 201309
  7. STILNOX [Suspect]
     Dosage: 1 DF, 1X/DAY
     Route: 048
     Dates: start: 201309
  8. DOLIPRANE [Suspect]
     Dosage: 1 G, 4X/DAY
     Route: 048
     Dates: start: 201309
  9. ATARAX [Suspect]
     Dosage: 25 MG, AS NEEDED
     Route: 048
     Dates: start: 201309
  10. HYPNOVEL [Concomitant]
     Indication: SEDATION
     Dosage: UNK
     Dates: start: 20130907, end: 20130912
  11. SUFENTANIL [Concomitant]
     Indication: SEDATION
     Dosage: UNK
     Dates: start: 20130907, end: 20130912
  12. NORADRENALINE [Concomitant]
     Dosage: 0.375 UG/KG/MIN
     Dates: start: 20130907, end: 20130910
  13. LOVENOX [Concomitant]
     Dosage: 4000 IU, DAILY
     Route: 058
     Dates: start: 201309

REACTIONS (1)
  - Drug reaction with eosinophilia and systemic symptoms [Recovered/Resolved]
